FAERS Safety Report 8536057-6 (Version None)
Quarter: 2012Q3

REPORT INFORMATION
  Report Type: 
  Country: None (occurrence: None)
  Receive Date: 20120725
  Receipt Date: 20120715
  Transmission Date: 20120928
  Serious: Yes (Other)
  Sender: FDA-Public Use
  Company Number: AR-BRISTOL-MYERS SQUIBB COMPANY-16524365

PATIENT
  Age: 59 Year
  Sex: Male

DRUGS (4)
  1. PRAMIPEXOLE DIHYDROCHLORIDE [Concomitant]
     Dosage: 1 DF: 0.25 UNITS NOS
  2. CARBIDOPA + LEVODOPA [Concomitant]
     Indication: PARKINSON'S DISEASE
     Dosage: 1 DF: 10/25 UNITS NOS, LEBOCAR
  3. METFORMIN HYDROCHLORIDE [Concomitant]
  4. ONGLYZA [Suspect]
     Indication: TYPE 2 DIABETES MELLITUS
     Dosage: STARTED 2YEARS AGO,ONCE
     Dates: start: 20101015, end: 20111123

REACTIONS (1)
  - ADENOCARCINOMA [None]
